FAERS Safety Report 7920127-7 (Version None)
Quarter: 2011Q4

REPORT INFORMATION
  Report Type: 
  Country: None (occurrence: None)
  Receive Date: 20111117
  Receipt Date: 20111110
  Transmission Date: 20120403
  Serious: Yes (Death, Hospitalization)
  Sender: FDA-Public Use
  Company Number: MX-SANOFI-AVENTIS-2011SA074486

PATIENT
  Age: 73 Year
  Sex: Male
  Weight: 50 kg

DRUGS (2)
  1. LANTUS [Suspect]
     Indication: TYPE 2 DIABETES MELLITUS
     Route: 058
     Dates: start: 20040101, end: 20110814
  2. DORIXINA [Concomitant]
     Route: 048
     Dates: start: 20110201, end: 20110814

REACTIONS (5)
  - HOSPITALISATION [None]
  - HYPERGLYCAEMIA [None]
  - RENAL FAILURE [None]
  - WEIGHT DECREASED [None]
  - DECREASED APPETITE [None]
